FAERS Safety Report 4509386-0 (Version None)
Quarter: 2004Q4

REPORT INFORMATION
  Report Type: 
  Country: None (occurrence: None)
  Receive Date: 20041025
  Receipt Date: 20040625
  Transmission Date: 20050328
  Serious: Yes (Other)
  Sender: FDA-Public Use
  Company Number: US-JNJFOC-20040608078

PATIENT
  Age: 30 Year
  Sex: Male
  Weight: 86.1834 kg

DRUGS (5)
  1. INFLIXIMAB (INFLIXIMAB, RECOMBINANT) LYOPHILIZED POWDER [Suspect]
     Indication: RHEUMATOID ARTHRITIS
     Dosage: 300 MG, INTRAVENOUS
     Route: 042
     Dates: start: 20020111, end: 20030601
  2. METHTOTREXATE ( ) METHOTREXATE [Concomitant]
  3. CELEBREX [Concomitant]
  4. OSTEO BI-FLEX ( ) OSTEO BI-FLEX [Concomitant]
  5. MULTIVITAMIN ( ) MULTIVITAMINS [Concomitant]

REACTIONS (1)
  - INFUSION RELATED REACTION [None]
